FAERS Safety Report 13321500 (Version 1)
Quarter: 2017Q1

REPORT INFORMATION
  Report Type: Spontaneous
  Country: US (occurrence: US)
  Receive Date: 20170310
  Receipt Date: 20170310
  Transmission Date: 20170428
  Serious: Yes (Other)
  Sender: FDA-Public Use
  Company Number: US-MALLINCKRODT-T201700842

PATIENT
  Age: 49 Year
  Sex: Female
  Weight: 41 kg

DRUGS (9)
  1. KEPPRA [Concomitant]
     Active Substance: LEVETIRACETAM
  2. NEURONTIN [Concomitant]
     Active Substance: GABAPENTIN
  3. COPAXONE [Concomitant]
     Active Substance: GLATIRAMER ACETATE
  4. GABLOFEN [Suspect]
     Active Substance: BACLOFEN
     Indication: PRODUCT USED FOR UNKNOWN INDICATION
     Dosage: UNKNOWN
     Route: 037
  5. FOSAMAX [Concomitant]
     Active Substance: ALENDRONATE SODIUM
  6. DESMOPRESSIN [Concomitant]
     Active Substance: DESMOPRESSIN
  7. LEXAPRO [Concomitant]
     Active Substance: ESCITALOPRAM OXALATE
  8. TRAZODONE [Concomitant]
     Active Substance: TRAZODONE HYDROCHLORIDE
  9. LUTERA [Concomitant]
     Active Substance: ETHINYL ESTRADIOL\LEVONORGESTREL

REACTIONS (1)
  - Seizure [Unknown]

NARRATIVE: CASE EVENT DATE: 201701
